FAERS Safety Report 14302302 (Version 1)
Quarter: 2017Q4

REPORT INFORMATION
  Report Type: Spontaneous
  Country: US (occurrence: US)
  Receive Date: 20171219
  Receipt Date: 20171219
  Transmission Date: 20180321
  Serious: Yes (Other)
  Sender: FDA-Public Use
  Company Number: US-SUPERNUS PHARMACEUTICALS, INC.-2017SUP00232

PATIENT
  Age: 46 Year
  Sex: Female
  Weight: 75.74 kg

DRUGS (3)
  1. CALCIUM [Concomitant]
     Active Substance: CALCIUM
     Dosage: UNK, AS NEEDED
  2. TROKENDI XR [Suspect]
     Active Substance: TOPIRAMATE
     Indication: MIGRAINE
     Dosage: 25 MG, 1X/DAY, AT NIGHT BEFORE BEDTIME
     Route: 048
     Dates: start: 201708, end: 20170815
  3. MULTIVITAMIN [Concomitant]
     Active Substance: VITAMINS
     Dosage: UNK, 1X/DAY

REACTIONS (9)
  - Depression [Recovering/Resolving]
  - Weight decreased [Not Recovered/Not Resolved]
  - Crying [Unknown]
  - Insomnia [Unknown]
  - Decreased appetite [Not Recovered/Not Resolved]
  - Disturbance in attention [Unknown]
  - Suicidal ideation [Recovering/Resolving]
  - Screaming [Unknown]
  - Feeling abnormal [Recovering/Resolving]

NARRATIVE: CASE EVENT DATE: 201708
